FAERS Safety Report 7455824-3 (Version None)
Quarter: 2011Q2

REPORT INFORMATION
  Report Type: 
  Country: None (occurrence: None)
  Receive Date: 20110503
  Receipt Date: 20110426
  Transmission Date: 20111010
  Serious: Yes (Death)
  Sender: FDA-Public Use
  Company Number: PHHO2011BR04605

PATIENT
  Sex: Male
  Weight: 58 kg

DRUGS (4)
  1. ATORVASTATIN [Concomitant]
  2. CARVEDILOL [Concomitant]
  3. NEORAL [Suspect]
     Indication: RENAL TRANSPLANT
     Dosage: 25 MG, BID
     Route: 048
     Dates: start: 20090814
  4. ASPIRIN [Concomitant]

REACTIONS (1)
  - SUDDEN DEATH [None]
